FAERS Safety Report 22297415 (Version 1)
Quarter: 2023Q2

REPORT INFORMATION
  Report Type: Spontaneous
  Country: FI (occurrence: FI)
  Receive Date: 20230509
  Receipt Date: 20230509
  Transmission Date: 20230722
  Serious: Yes (Death)
  Sender: FDA-Public Use
  Company Number: FI-CHEPLA-2023005580

PATIENT
  Age: 22 Year
  Sex: Male

DRUGS (5)
  1. CLONAZEPAM [Suspect]
     Active Substance: CLONAZEPAM
  2. BUPRENORPHINE [Suspect]
     Active Substance: BUPRENORPHINE
  3. GABAPENTIN [Suspect]
     Active Substance: GABAPENTIN
  4. ALPRAZOLAM [Suspect]
     Active Substance: ALPRAZOLAM
  5. CANNABIS SATIVA SUBSP. INDICA TOP [Suspect]
     Active Substance: CANNABIS SATIVA SUBSP. INDICA TOP

REACTIONS (1)
  - Accidental poisoning [Fatal]
